FAERS Safety Report 15453514 (Version 2)
Quarter: 2018Q4

REPORT INFORMATION
  Report Type: Spontaneous
  Country: JP (occurrence: JP)
  Receive Date: 20181001
  Receipt Date: 20181228
  Transmission Date: 20190204
  Serious: Yes (Hospitalization)
  Sender: FDA-Public Use
  Company Number: JP-PFIZER INC-2018090517

PATIENT
  Age: 79 Year
  Sex: Male

DRUGS (6)
  1. LYRICA [Suspect]
     Active Substance: PREGABALIN
     Dosage: 25 MG, UNK
     Route: 048
     Dates: start: 20170626
  2. LYRICA [Suspect]
     Active Substance: PREGABALIN
     Dosage: 125 MG, DAILY
     Route: 048
     Dates: start: 201711
  3. POWDERED ACONITE [Concomitant]
     Dosage: 0.5 G, 3X/DAY
     Route: 048
     Dates: start: 20171225
  4. NE SOFT [Concomitant]
     Dosage: 200 MG, 3X/DAY
     Route: 048
     Dates: start: 20180113
  5. ZOLPIDEM TARTRATE. [Concomitant]
     Active Substance: ZOLPIDEM TARTRATE
     Dosage: 5 MG, 1X/DAY
     Route: 048
     Dates: start: 20171014
  6. LYRICA [Suspect]
     Active Substance: PREGABALIN
     Dosage: 75 MG, DAILY
     Route: 048

REACTIONS (3)
  - Prostate cancer [Recovered/Resolved]
  - Chromaturia [Recovered/Resolved]
  - Haematuria [Unknown]

NARRATIVE: CASE EVENT DATE: 20180224
